FAERS Safety Report 9870107 (Version 1)
Quarter: 2014Q1

REPORT INFORMATION
  Report Type: Spontaneous
  Country: US (occurrence: US)
  Receive Date: 20140205
  Receipt Date: 20140205
  Transmission Date: 20141002
  Serious: Yes (Death)
  Sender: FDA-Public Use
  Company Number: US-BAYER-2014-018495

PATIENT
  Sex: Male

DRUGS (2)
  1. PHILLIPS^ MILK OF MAGNESIA [Suspect]
     Indication: ANTIINFLAMMATORY THERAPY
     Dosage: 2-3 DF, OTHER FREQUENCY
  2. PHILLIPS^ MILK OF MAGNESIA [Suspect]
     Indication: DETOXIFICATION

REACTIONS (2)
  - Death [Fatal]
  - Intentional drug misuse [None]
